FAERS Safety Report 4563674-0 (Version None)
Quarter: 2005Q1

REPORT INFORMATION
  Report Type: 
  Country: None (occurrence: None)
  Receive Date: 20050125
  Receipt Date: 20050112
  Transmission Date: 20050727
  Serious: Yes (Hospitalization)
  Sender: FDA-Public Use
  Company Number: 2005012596

PATIENT
  Age: 58 Year
  Sex: Male

DRUGS (4)
  1. FLUCONAZOLE [Suspect]
     Indication: SYSTEMIC CANDIDA
     Dosage: 200 MG (200 MG), ORAL
     Route: 048
     Dates: start: 20041014, end: 20041026
  2. TACROLIMUS (TACROLIMUS) [Suspect]
     Indication: PROPHYLAXIS AGAINST TRANSPLANT REJECTION
     Dosage: 4 DOSE FORMS, ORAL
     Route: 048
     Dates: start: 20041202
  3. VALGANCICLOVIR (VALGANCICLOVIR) [Suspect]
     Indication: ANTIVIRAL PROPHYLAXIS
     Dosage: 4 DOSE FORMS, ORAL
     Route: 048
     Dates: start: 20041016
  4. PREDNISONE [Concomitant]

REACTIONS (5)
  - BLOOD CREATININE INCREASED [None]
  - DIABETES MELLITUS [None]
  - DRUG INTERACTION [None]
  - DRUG LEVEL DECREASED [None]
  - OVERDOSE [None]
